FAERS Safety Report 22390508 (Version 2)
Quarter: 2023Q2

REPORT INFORMATION
  Report Type: Report from Study
  Country: CA (occurrence: CA)
  Receive Date: 20230531
  Receipt Date: 20230620
  Transmission Date: 20230721
  Serious: Yes (Death)
  Sender: FDA-Public Use
  Company Number: CA-TAIHO-2022-003262

PATIENT
  Age: 42 Year
  Sex: Female

DRUGS (1)
  1. LONSURF [Suspect]
     Active Substance: TIPIRACIL HYDROCHLORIDE\TRIFLURIDINE
     Indication: Colorectal cancer metastatic
     Dosage: DOSE, FREQUENCY UNKNOWN; CURRENT CYCLE UNKNOWN
     Route: 048
     Dates: start: 20221209

REACTIONS (3)
  - Disease progression [Fatal]
  - Decreased appetite [Unknown]
  - Nausea [Unknown]
